FAERS Safety Report 5110326-4 (Version None)
Quarter: 2006Q3

REPORT INFORMATION
  Report Type: 
  Country: None (occurrence: None)
  Receive Date: 20060915
  Receipt Date: 20060830
  Transmission Date: 20061208
  Serious: Yes (Hospitalization)
  Sender: FDA-Public Use
  Company Number: 6025430

PATIENT
  Age: 65 Year
  Sex: Female

DRUGS (11)
  1. LEVOTHYROXINE SODIUM [Suspect]
     Indication: THYROIDECTOMY
     Dosage: 150 MCG (150 MCG, 1 IN 1 D) ORAL
     Route: 048
     Dates: start: 20010101
  2. SPIRONOLACTONE [Suspect]
     Indication: DRUG USE FOR UNKNOWN INDICATION
     Dosage: 12, 5 MG (12, 5 MG, 1 IN 1 D) ORAL
     Route: 048
     Dates: end: 20060222
  3. ISOPTIN [Suspect]
     Indication: DRUG USE FOR UNKNOWN INDICATION
     Dosage: 120 MG (120 MG, 1 IN 1 D) ORAL
     Route: 048
     Dates: end: 20050331
  4. ALTIZIDE                            (ALTIZIDE) [Suspect]
     Indication: DRUG USE FOR UNKNOWN INDICATION
     Dosage: 7, 5MG (7, 5 MG, 1 IN 1 D) ORAL
     Route: 048
     Dates: end: 20050222
  5. DAFLON                 (DIOSMIN) [Concomitant]
  6. DIOSMINE                   (DIOSMIN) [Concomitant]
  7. OLMESARTAN                   (OLMESARTAN) [Concomitant]
  8. TETRAZEPAM                               (TETRAZEPAM) [Concomitant]
  9. ACETAMINOPHEN [Concomitant]
  10. GABAPENTIN [Concomitant]
  11. PANTOPRAZOLE SODIUM [Concomitant]

REACTIONS (5)
  - HYPERAESTHESIA [None]
  - LEUKOPENIA [None]
  - NERVOUS SYSTEM DISORDER [None]
  - NEUTROPENIA [None]
  - PAIN IN EXTREMITY [None]
